FAERS Safety Report 9688789 (Version 1)
Quarter: 2013Q4

REPORT INFORMATION
  Report Type: Spontaneous
  Country: GR (occurrence: GR)
  Receive Date: 20131114
  Receipt Date: 20131114
  Transmission Date: 20140711
  Serious: Yes (Other)
  Sender: FDA-Public Use
  Company Number: GR-PFIZER INC-2013320362

PATIENT
  Age: 37 Year
  Sex: Male

DRUGS (5)
  1. REVATIO [Suspect]
     Indication: PULMONARY HYPERTENSION
     Dosage: 20 MG, 2X/DAY
     Dates: start: 2013
  2. TRACLEER [Concomitant]
     Dosage: UNK
  3. SINTROM [Concomitant]
     Dosage: UNK
  4. ENDOXAN [Concomitant]
     Dosage: UNK
  5. ADALAT [Concomitant]
     Dosage: UNK

REACTIONS (7)
  - Weight increased [Unknown]
  - Swelling [Unknown]
  - Fluid retention [Unknown]
  - Rhinorrhoea [Unknown]
  - Nasal congestion [Unknown]
  - Influenza like illness [Unknown]
  - Dyspnoea [Unknown]
